FAERS Safety Report 15470116 (Version 1)
Quarter: 2018Q4

REPORT INFORMATION
  Report Type: Spontaneous
  Country: US (occurrence: US)
  Receive Date: 20181005
  Receipt Date: 20181005
  Transmission Date: 20190205
  Serious: No
  Sender: FDA-Public Use
  Company Number: US-TEVA-2018-US-960199

PATIENT
  Sex: Female

DRUGS (1)
  1. CILOSTAZOL. [Suspect]
     Active Substance: CILOSTAZOL
     Indication: COAGULOPATHY
     Route: 065

REACTIONS (5)
  - Pruritus [Unknown]
  - Full blood count decreased [Unknown]
  - Urticaria [Unknown]
  - Hypotension [Unknown]
  - Feeling abnormal [Unknown]
